FAERS Safety Report 19242048 (Version 1)
Quarter: 2021Q2

REPORT INFORMATION
  Report Type: Spontaneous
  Country: DE (occurrence: DE)
  Receive Date: 20210511
  Receipt Date: 20210511
  Transmission Date: 20210717
  Serious: Yes (Hospitalization)
  Sender: FDA-Public Use
  Company Number: DE-TEVA-2021-DE-1909053

PATIENT
  Age: 63 Year
  Sex: Male

DRUGS (6)
  1. METFORMIN [Concomitant]
     Active Substance: METFORMIN HYDROCHLORIDE
     Dosage: 1700 MILLIGRAM DAILY; 1?0?1?0
  2. FLUOROURACIL. [Suspect]
     Active Substance: FLUOROURACIL
     Dosage: LAST ON 23?DEC?2020
  3. GLIMEPIRID [Concomitant]
     Active Substance: GLIMEPIRIDE
     Dosage: .5 DOSAGE FORMS DAILY; 0.5?0?0?0
  4. OXALIPLATIN. [Suspect]
     Active Substance: OXALIPLATIN
     Dosage: LAST ON 23?DEC?2020
  5. BEVACIZUMAB. [Suspect]
     Active Substance: BEVACIZUMAB
     Dosage: LAST ON 23?DEC?2020
  6. FOLINSAEURE [Suspect]
     Active Substance: LEUCOVORIN
     Dosage: LAST ON 23?DEC?2020

REACTIONS (1)
  - Pyrexia [Unknown]

NARRATIVE: CASE EVENT DATE: 20210201
